FAERS Safety Report 18804917 (Version 2)
Quarter: 2021Q1

REPORT INFORMATION
  Report Type: Report from Study
  Country: US (occurrence: US)
  Receive Date: 20210129
  Receipt Date: 20210301
  Transmission Date: 20210419
  Serious: Yes (Death, Other)
  Sender: FDA-Public Use
  Company Number: US-ACADIA PHARMACEUTICALS INC.-ACA-2021-PIM-000196

PATIENT
  Sex: Male

DRUGS (16)
  1. VITAMIN D3 [Concomitant]
     Active Substance: CHOLECALCIFEROL
  2. MEMANTINE. [Concomitant]
     Active Substance: MEMANTINE
  3. FOLIC ACID. [Concomitant]
     Active Substance: FOLIC ACID
  4. MIRABEGRON [Concomitant]
     Active Substance: MIRABEGRON
  5. MIRALAX [Concomitant]
     Active Substance: POLYETHYLENE GLYCOL 3350
  6. FLORINEF ACETATE [Concomitant]
     Active Substance: FLUDROCORTISONE ACETATE
  7. METHOTREXATE. [Concomitant]
     Active Substance: METHOTREXATE
  8. PROTONIX [OMEPRAZOLE] [Concomitant]
     Active Substance: OMEPRAZOLE
  9. XARELTO [Concomitant]
     Active Substance: RIVAROXABAN
  10. CYMBALTA [Concomitant]
     Active Substance: DULOXETINE HYDROCHLORIDE
  11. SEROQUEL [Concomitant]
     Active Substance: QUETIAPINE FUMARATE
  12. UROXATRAL [Concomitant]
     Active Substance: ALFUZOSIN HYDROCHLORIDE
  13. SYMBICORT [Concomitant]
     Active Substance: BUDESONIDE\FORMOTEROL FUMARATE DIHYDRATE
  14. SINGULAIR [Concomitant]
     Active Substance: MONTELUKAST SODIUM
  15. PREDNISONE. [Concomitant]
     Active Substance: PREDNISONE
  16. NUPLAZID [Suspect]
     Active Substance: PIMAVANSERIN TARTRATE
     Indication: PARKINSON^S DISEASE
     Dosage: 34 MILLIGRAM, QD
     Route: 048
     Dates: start: 201811, end: 20210115

REACTIONS (1)
  - COVID-19 [Recovered/Resolved]
